FAERS Safety Report 10006331 (Version 2)
Quarter: 2014Q3

REPORT INFORMATION
  Report Type: Spontaneous
  Country: US (occurrence: US)
  Receive Date: 20140313
  Receipt Date: 20140905
  Transmission Date: 20150326
  Serious: Yes (Hospitalization)
  Sender: FDA-Public Use
  Company Number: US-BAYER-2014-036385

PATIENT
  Age: 38 Year
  Sex: Female
  Weight: 79.37 kg

DRUGS (6)
  1. RESTORIL [Concomitant]
     Active Substance: TEMAZEPAM
     Dosage: 15 MG, HS
  2. CEPHULAC [Concomitant]
     Active Substance: LACTULOSE
     Dosage: 30 ML, BID
  3. YAZ [Suspect]
     Active Substance: DROSPIRENONE\ETHINYL ESTRADIOL
     Indication: PREMENSTRUAL SYNDROME
     Dosage: UNK
     Dates: start: 2008, end: 2009
  4. PROTONIX [Concomitant]
     Active Substance: PANTOPRAZOLE SODIUM
     Dosage: 20 MG, UNK
  5. PRILOSEC [Concomitant]
     Active Substance: OMEPRAZOLE MAGNESIUM
     Dosage: 40 MG, DAILY
  6. EPHEDRA [Concomitant]
     Active Substance: EPHEDRA
     Dosage: UNK
     Dates: start: 20091221

REACTIONS (8)
  - General physical health deterioration [None]
  - Anxiety [None]
  - Pain [None]
  - Pulmonary embolism [None]
  - Dyspnoea [None]
  - Injury [None]
  - Abdominal pain [None]
  - Emotional distress [None]

NARRATIVE: CASE EVENT DATE: 200901
